FAERS Safety Report 19157020 (Version 2)
Quarter: 2022Q2

REPORT INFORMATION
  Report Type: Report from Study
  Country: US (occurrence: US)
  Receive Date: 20210420
  Receipt Date: 20220415
  Transmission Date: 20220721
  Serious: Yes (Hospitalization, Other)
  Sender: FDA-Public Use
  Company Number: US-SUN PHARMACEUTICAL INDUSTRIES LTD-2021R1-291966

PATIENT
  Age: 62 Year

DRUGS (6)
  1. DOXORUBICIN [Suspect]
     Active Substance: DOXORUBICIN
     Indication: Plasmablastic lymphoma
     Dosage: 10 MILLIGRAM/SQ. METER, DAILY
     Route: 042
  2. PREDNISONE [Suspect]
     Active Substance: PREDNISONE
     Indication: Plasmablastic lymphoma
     Dosage: 60 MILLIGRAM/SQ. METER, BID
     Route: 048
  3. VINCRISTINE [Suspect]
     Active Substance: VINCRISTINE
     Indication: Plasmablastic lymphoma
     Dosage: 0.4 MILLIGRAM/SQ. METER, DAILY
     Route: 042
  4. BORTEZOMIB [Suspect]
     Active Substance: BORTEZOMIB
     Indication: Plasmablastic lymphoma
     Dosage: D1
     Route: 058
  5. CYCLOPHOSPHAMIDE [Suspect]
     Active Substance: CYCLOPHOSPHAMIDE
     Indication: Plasmablastic lymphoma
     Dosage: 750 MILLIGRAM/SQ. METER
     Route: 042
  6. ETOPOSIDE [Suspect]
     Active Substance: ETOPOSIDE
     Indication: Plasmablastic lymphoma
     Dosage: 50 MILLIGRAM/SQ. METER, DAILY
     Route: 042

REACTIONS (1)
  - Febrile neutropenia [Unknown]
